FAERS Safety Report 5825730-6 (Version None)
Quarter: 2008Q3

REPORT INFORMATION
  Report Type: 
  Country: None (occurrence: None)
  Receive Date: 20080728
  Receipt Date: 20080728
  Transmission Date: 20090109
  Serious: Yes (Other)
  Sender: FDA-Public Use
  Company Number: None

PATIENT
  Age: 31 Year
  Sex: Female
  Weight: 65.7716 kg

DRUGS (3)
  1. ACCUTANE [Suspect]
     Indication: ACNE CYSTIC
     Dosage: PO, MOST LIKELY IN 1993
     Route: 048
  2. RETIN-A [Concomitant]
  3. TETRACYCLINE [Concomitant]

REACTIONS (6)
  - DRY SKIN [None]
  - FOOT FRACTURE [None]
  - IMPAIRED HEALING [None]
  - INCREASED TENDENCY TO BRUISE [None]
  - LIP SWELLING [None]
  - SCAR [None]
